FAERS Safety Report 21379245 (Version 1)
Quarter: 2022Q3

REPORT INFORMATION
  Report Type: Spontaneous
  Country: US (occurrence: US)
  Receive Date: 20220927
  Receipt Date: 20220927
  Transmission Date: 20221027
  Serious: No
  Sender: FDA-Public Use
  Company Number: US-AUROBINDO-AUR-APL-2022-004968

PATIENT
  Sex: Female
  Weight: 45 kg

DRUGS (1)
  1. MONTELUKAST [Suspect]
     Active Substance: MONTELUKAST SODIUM
     Indication: Rhinorrhoea
     Dosage: UNK, ONCE A DAY (AT NIGHT BEFORE BED)
     Route: 065
     Dates: start: 20220207

REACTIONS (2)
  - Reaction to excipient [Recovering/Resolving]
  - Drug ineffective [Unknown]

NARRATIVE: CASE EVENT DATE: 20220208
